FAERS Safety Report 8458666-5 (Version None)
Quarter: 2012Q2

REPORT INFORMATION
  Report Type: 
  Country: None (occurrence: None)
  Receive Date: 20120622
  Receipt Date: 20120618
  Transmission Date: 20120825
  Serious: Yes (Hospitalization)
  Sender: FDA-Public Use
  Company Number: US-BAYER-2012-014289

PATIENT
  Age: 32 Year
  Sex: Female
  Weight: 68.027 kg

DRUGS (6)
  1. YASMIN [Suspect]
     Dosage: UNK
     Dates: start: 20040813, end: 20050608
  2. OTHER ANALGESICS AND ANTIPYRETICS [Concomitant]
     Indication: ABDOMINAL PAIN UPPER
     Dosage: 2 DAYS
     Route: 048
  3. YAZ [Suspect]
     Dosage: UNK
     Dates: start: 20080928
  4. OMEPRAZOLE [Concomitant]
     Dosage: 20 MG, QD
     Dates: start: 20091230
  5. MULTI-VITAMINS [Concomitant]
     Route: 048
  6. OMEGA-3 FATTY ACIDS [Concomitant]
     Route: 048

REACTIONS (4)
  - GALLBLADDER DISORDER [None]
  - PAIN [None]
  - CHOLECYSTITIS CHRONIC [None]
  - EMOTIONAL DISTRESS [None]
